FAERS Safety Report 21273384 (Version 1)
Quarter: 2022Q3

REPORT INFORMATION
  Report Type: Report from Study
  Country: EG (occurrence: EG)
  Receive Date: 20220831
  Receipt Date: 20220831
  Transmission Date: 20221027
  Serious: Yes (Other)
  Sender: FDA-Public Use
  Company Number: EG-NOVARTISPH-NVSC2022EG193870

PATIENT
  Sex: Female

DRUGS (1)
  1. OMNITROPE [Suspect]
     Active Substance: SOMATROPIN
     Indication: Growth hormone deficiency
     Dosage: 1.65 MG, QD (STOP DATE WAS AFTER 6 MONTHS OF STARTING OMNITROPE)
     Route: 058
     Dates: start: 20220814

REACTIONS (1)
  - Growth retardation [Not Recovered/Not Resolved]
